FAERS Safety Report 14298989 (Version 1)
Quarter: 2017Q4

REPORT INFORMATION
  Report Type: Spontaneous
  Country: BR (occurrence: BR)
  Receive Date: 20171218
  Receipt Date: 20171218
  Transmission Date: 20180321
  Serious: Yes (Hospitalization)
  Sender: FDA-Public Use
  Company Number: BR-B.I. PHARMACEUTICALS,INC./RIDGEFIELD-2017-BI-066256

PATIENT
  Age: 52 Year
  Sex: Male

DRUGS (3)
  1. LEVODOPA [Concomitant]
     Active Substance: LEVODOPA
     Indication: PRODUCT USED FOR UNKNOWN INDICATION
     Route: 065
  2. LEVODOPA [Concomitant]
     Active Substance: LEVODOPA
     Route: 065
  3. SIFROL [Suspect]
     Active Substance: PRAMIPEXOLE
     Indication: PARKINSON^S DISEASE
     Route: 065

REACTIONS (5)
  - Gambling disorder [Unknown]
  - Psychotic disorder [Recovered/Resolved]
  - Parkinsonism [Unknown]
  - Impulse-control disorder [Recovering/Resolving]
  - Weight decreased [Unknown]
